FAERS Safety Report 4471714-2 (Version None)
Quarter: 2004Q4

REPORT INFORMATION
  Report Type: 
  Country: None (occurrence: None)
  Receive Date: 20041012
  Receipt Date: 20040804
  Transmission Date: 20050328
  Serious: Yes (Hospitalization)
  Sender: FDA-Public Use
  Company Number: US-ROCHE-376769

PATIENT
  Age: 19 Year
  Sex: Female

DRUGS (1)
  1. ACCUTANE [Suspect]
     Indication: ACNE
     Route: 065
     Dates: start: 19970615

REACTIONS (10)
  - ANAEMIA [None]
  - CROHN'S DISEASE [None]
  - DEHYDRATION [None]
  - DRY SKIN [None]
  - ENTERITIS [None]
  - HYPOKALAEMIA [None]
  - ILEITIS [None]
  - SYNCOPE [None]
  - URINARY TRACT INFECTION [None]
  - WEIGHT DECREASED [None]
